FAERS Safety Report 18228127 (Version 1)
Quarter: 2020Q3

REPORT INFORMATION
  Report Type: Spontaneous
  Country: JP (occurrence: JP)
  Receive Date: 20200903
  Receipt Date: 20200903
  Transmission Date: 20201103
  Serious: Yes (Hospitalization, Other)
  Sender: FDA-Public Use
  Company Number: JP-PFIZER INC-2020336407

PATIENT
  Age: 80 Year
  Sex: Female
  Weight: 45 kg

DRUGS (7)
  1. SENNOSIDE SAWAI [Concomitant]
     Dosage: 12 MG
  2. SHAKUYAKUKANZOTO [Concomitant]
     Active Substance: HERBALS
     Dosage: UNK
  3. OXALIPLATIN 200MG/40ML HOSPIRA [Suspect]
     Active Substance: OXALIPLATIN
     Indication: COLON CANCER
     Dosage: 180 MG, 1X/DAY
     Route: 042
     Dates: start: 20200414, end: 20200414
  4. S?1TAIHO OD [Suspect]
     Active Substance: GIMERACIL\OTERACIL\TEGAFUR
     Indication: COLON CANCER
     Dosage: 50 MG, 2X/DAY
     Route: 048
     Dates: start: 20200414, end: 20200420
  5. S?1TAIHO OD [Suspect]
     Active Substance: GIMERACIL\OTERACIL\TEGAFUR
     Dosage: 80 MG, DAILY
     Dates: start: 20200421
  6. AVASTIN [Suspect]
     Active Substance: BEVACIZUMAB
     Indication: COLON CANCER
     Dosage: 325 MG, 1X/DAY
     Dates: start: 20200414, end: 20200414
  7. MAGMITT [Concomitant]
     Active Substance: MAGNESIUM OXIDE
     Dosage: 500 MG

REACTIONS (6)
  - Nausea [Recovering/Resolving]
  - Renal impairment [Recovering/Resolving]
  - Depressed level of consciousness [Recovering/Resolving]
  - Decreased appetite [Recovering/Resolving]
  - Hyperglycaemia [Recovering/Resolving]
  - Pyrexia [Recovering/Resolving]

NARRATIVE: CASE EVENT DATE: 20200416
